APPROVED DRUG PRODUCT: AXITINIB
Active Ingredient: AXITINIB
Strength: 5MG
Dosage Form/Route: TABLET;ORAL
Application: A211650 | Product #002 | TE Code: AB
Applicant: APOTEX INC
Approved: Oct 30, 2025 | RLD: No | RS: No | Type: RX